FAERS Safety Report 10904227 (Version 1)
Quarter: 2015Q1

REPORT INFORMATION
  Report Type: Spontaneous
  Country: US (occurrence: None)
  Receive Date: 20150304
  Receipt Date: 20150304
  Transmission Date: 20150721
  Serious: Yes (Life-Threatening, Hospitalization, Disabling)
  Sender: FDA-Public Use
  Company Number: None

PATIENT
  Age: 86 Year
  Sex: Female
  Weight: 196 kg

DRUGS (11)
  1. WARFARIN [Concomitant]
     Active Substance: WARFARIN
  2. IRON WITH VIT C [Concomitant]
  3. HYDROCHLOROTHISIDE [Concomitant]
  4. ENALAPFRIL [Concomitant]
  5. MEGARED [Concomitant]
  6. FLURBIPROFEN. [Suspect]
     Active Substance: FLURBIPROFEN
     Indication: ARTHRITIS
     Dosage: ONCE DAILY?
  7. FLURBIPROFEN. [Suspect]
     Active Substance: FLURBIPROFEN
     Indication: GAIT DISTURBANCE
     Dosage: ONCE DAILY?
  8. POTTASSIUM [Concomitant]
  9. CARVEDILOL. [Concomitant]
     Active Substance: CARVEDILOL
  10. VITAMINND3 [Concomitant]
  11. FLURBIPROFEN. [Suspect]
     Active Substance: FLURBIPROFEN
     Indication: NEOPLASM MALIGNANT
     Dosage: ONCE DAILY?

REACTIONS (6)
  - Abasia [None]
  - Pulmonary embolism [None]
  - Pneumonia [None]
  - Renal injury [None]
  - Haemorrhage [None]
  - Apparent death [None]

NARRATIVE: CASE EVENT DATE: 20150112
